FAERS Safety Report 23766978 (Version 1)
Quarter: 2024Q2

REPORT INFORMATION
  Report Type: Spontaneous
  Country: US (occurrence: US)
  Receive Date: 20240422
  Receipt Date: 20240422
  Transmission Date: 20240716
  Serious: No
  Sender: FDA-Public Use
  Company Number: US-NAARI PTE LIMITED-2023NP000077

PATIENT
  Age: 20 Year
  Sex: Female

DRUGS (5)
  1. NORGESTIMATE AND ETHINYL ESTRADIOL [Interacting]
     Active Substance: ETHINYL ESTRADIOL\NORGESTIMATE
     Indication: Endometriosis
     Dosage: UNK
     Route: 048
  2. LAMOTRIGINE [Interacting]
     Active Substance: LAMOTRIGINE
     Indication: Bipolar II disorder
     Dosage: UNK, 200 MILLIGRAM, QD
     Route: 065
  3. LAMOTRIGINE [Interacting]
     Active Substance: LAMOTRIGINE
     Indication: Depression
     Dosage: 300 UNK, QD
     Route: 065
  4. BUPROPION [Concomitant]
     Active Substance: BUPROPION
     Indication: Bipolar II disorder
     Dosage: UNK
     Route: 065
  5. BUPROPION [Concomitant]
     Active Substance: BUPROPION
     Indication: Depression

REACTIONS (4)
  - Symptom recurrence [Unknown]
  - Depressive symptom [Unknown]
  - Drug interaction [Unknown]
  - Off label use [Unknown]
